FAERS Safety Report 7929034-7 (Version None)
Quarter: 2011Q4

REPORT INFORMATION
  Report Type: 
  Country: None (occurrence: None)
  Receive Date: 20111118
  Receipt Date: 20101203
  Transmission Date: 20120403
  Serious: Yes (Hospitalization)
  Sender: FDA-Public Use
  Company Number: US-ROCHE-772179

PATIENT
  Sex: Male
  Weight: 97.519 kg

DRUGS (16)
  1. METOPROLOL TARTRATE [Concomitant]
  2. TESTOSTERONE [Concomitant]
  3. COMPAZINE [Concomitant]
  4. AMBIEN [Concomitant]
     Dates: start: 20100415
  5. IMODIUM [Concomitant]
  6. ZOLOFT [Concomitant]
  7. VEMURAFENIB [Suspect]
  8. OXYCODONE HCL [Concomitant]
     Dosage: OXYCODONE IR
  9. ACETAMINOPHEN [Concomitant]
  10. ZOFRAN [Concomitant]
     Dates: start: 20100713
  11. LOMOTIL [Concomitant]
     Dosage: 1 TAB
     Dates: start: 20100802
  12. LISINOPRIL [Concomitant]
     Dates: start: 20100323
  13. VEMURAFENIB [Suspect]
     Indication: METASTATIC MALIGNANT MELANOMA
     Dosage: LAST DOSE PRIOR TO SAE: 28/NOV/2010
     Route: 048
     Dates: start: 20100507, end: 20101129
  14. PHENERGAN [Concomitant]
     Dosage: TDD: 1 APP
  15. PROMETHAZINE [Concomitant]
     Dosage: TDD: 2 APP
  16. CYANOCOBALAMIN [Concomitant]
     Dates: start: 20080301

REACTIONS (1)
  - FALL [None]
